FAERS Safety Report 4388645-9 (Version None)
Quarter: 2004Q2

REPORT INFORMATION
  Report Type: 
  Country: None (occurrence: None)
  Receive Date: 20040624
  Receipt Date: 20040616
  Transmission Date: 20050107
  Serious: Yes (Other)
  Sender: FDA-Public Use
  Company Number: US-SHR-03-009987

PATIENT
  Age: 52 Year
  Sex: Female
  Weight: 45.4 kg

DRUGS (3)
  1. BETASERON [Suspect]
     Indication: MULTIPLE SCLEROSIS
     Dosage: 8 MIU, EVERY 2D, SUBCUTANEOUS
     Route: 058
     Dates: start: 20030404
  2. LASIX [Suspect]
     Indication: HYPERTENSION
     Dosage: EVERY OTHER DAY, ORAL
     Route: 048
  3. KCL-RETARD [Concomitant]

REACTIONS (2)
  - BLOOD POTASSIUM DECREASED [None]
  - LIVER FUNCTION TEST ABNORMAL [None]
